FAERS Safety Report 5139419-2 (Version None)
Quarter: 2006Q4

REPORT INFORMATION
  Report Type: 
  Country: None (occurrence: None)
  Receive Date: 20061030
  Receipt Date: 20060117
  Transmission Date: 20070319
  Serious: No
  Sender: FDA-Public Use
  Company Number: US-GLAXOSMITHKLINE-A0589673A

PATIENT
  Age: 59 Year
  Sex: Female

DRUGS (9)
  1. SEREVENT [Suspect]
     Indication: ASTHMA
     Dosage: 1PUFF TWICE PER DAY
     Route: 055
     Dates: start: 19980101, end: 20051001
  2. VENTOLIN [Concomitant]
  3. NORVASK [Concomitant]
  4. XALATAN [Concomitant]
  5. OPTICROM [Concomitant]
  6. INTAL [Concomitant]
  7. SINGULAIR [Concomitant]
  8. ASPIRIN [Concomitant]
  9. SKELAXIN [Concomitant]

REACTIONS (4)
  - DEPRESSION [None]
  - DYSPNOEA [None]
  - MUSCLE SPASMS [None]
  - MUSCULOSKELETAL DISCOMFORT [None]
